FAERS Safety Report 9132049 (Version 1)
Quarter: 2013Q1

REPORT INFORMATION
  Report Type: Report from Study
  Country: US (occurrence: US)
  Receive Date: 20130301
  Receipt Date: 20130301
  Transmission Date: 20140127
  Serious: No
  Sender: FDA-Public Use
  Company Number: US-MYLANLABS-2012S1001511

PATIENT
  Age: 17 Year
  Sex: Male

DRUGS (4)
  1. CLARAVIS [Suspect]
     Indication: ACNE
  2. CLARAVIS [Suspect]
     Indication: ACNE
  3. CLARAVIS [Suspect]
     Indication: ACNE
  4. AMNESTEEM CAPSULES [Suspect]
     Indication: ACNE
     Dates: end: 201112

REACTIONS (1)
  - Urine abnormality [Unknown]
